FAERS Safety Report 8258143-0 (Version None)
Quarter: 2012Q2

REPORT INFORMATION
  Report Type: 
  Country: None (occurrence: None)
  Receive Date: 20120404
  Receipt Date: 20120327
  Transmission Date: 20120825
  Serious: Yes (Hospitalization, Other)
  Sender: FDA-Public Use
  Company Number: PHHY2012TW022554

PATIENT
  Age: 84 Year
  Sex: Female

DRUGS (1)
  1. GLEEVEC [Suspect]
     Dosage: UNK UKN, UNK
     Route: 048
     Dates: start: 20000101

REACTIONS (9)
  - FALL [None]
  - LUNG INFECTION [None]
  - DUODENAL ULCER [None]
  - HAEMOGLOBIN DECREASED [None]
  - PYREXIA [None]
  - CHOKING [None]
  - WRONG TECHNIQUE IN DRUG USAGE PROCESS [None]
  - DYSPHAGIA [None]
  - DEMENTIA [None]
